FAERS Safety Report 19268580 (Version 1)
Quarter: 2021Q2

REPORT INFORMATION
  Report Type: Spontaneous
  Country: US (occurrence: US)
  Receive Date: 20210517
  Receipt Date: 20210517
  Transmission Date: 20210717
  Serious: No
  Sender: FDA-Public Use
  Company Number: US-HORIZON THERAPEUTICS-HZN-2021-001299

PATIENT
  Sex: Female

DRUGS (1)
  1. TEPEZZA [Suspect]
     Active Substance: TEPROTUMUMAB-TRBW
     Indication: PRODUCT USED FOR UNKNOWN INDICATION
     Route: 065

REACTIONS (11)
  - Skin lesion [Unknown]
  - Gingival pain [Unknown]
  - Glycosylated haemoglobin increased [Unknown]
  - Hypoacusis [Unknown]
  - Dyspareunia [Unknown]
  - Onychoclasis [Unknown]
  - Alopecia [Unknown]
  - Blood glucose increased [Unknown]
  - Amenorrhoea [Unknown]
  - Tinnitus [Unknown]
  - Dry skin [Unknown]
